FAERS Safety Report 6338230-4 (Version None)
Quarter: 2009Q3

REPORT INFORMATION
  Report Type: 
  Country: None (occurrence: None)
  Receive Date: 20090902
  Receipt Date: 20090820
  Transmission Date: 20100115
  Serious: Yes (Other)
  Sender: FDA-Public Use
  Company Number: PHHY2009JP35291

PATIENT
  Sex: Male
  Weight: 2.56 kg

DRUGS (2)
  1. GLEEVEC [Suspect]
     Dosage: MATERNAL DOSE: 400 MG/DAY
     Route: 064
  2. GLEEVEC [Suspect]
     Dosage: UNK

REACTIONS (2)
  - DRUG EXPOSURE DURING PREGNANCY [None]
  - PREMATURE BABY [None]
